FAERS Safety Report 13935660 (Version 1)
Quarter: 2017Q3

REPORT INFORMATION
  Report Type: Spontaneous
  Country: US (occurrence: US)
  Receive Date: 20170902
  Receipt Date: 20170902
  Transmission Date: 20171127
  Serious: Yes (Other)
  Sender: FDA-Public Use
  Company Number: None

PATIENT
  Age: 49 Year
  Sex: Female
  Weight: 50.4 kg

DRUGS (2)
  1. CONTRACEPTIVE PILL [Concomitant]
  2. SULFASALAZINE. [Suspect]
     Active Substance: SULFASALAZINE

REACTIONS (3)
  - Cough [None]
  - Headache [None]
  - Heart rate irregular [None]

NARRATIVE: CASE EVENT DATE: 20170301
